FAERS Safety Report 9836895 (Version 2)
Quarter: 2014Q1

REPORT INFORMATION
  Report Type: Spontaneous
  Country: US (occurrence: US)
  Receive Date: 20140123
  Receipt Date: 20140123
  Transmission Date: 20141002
  Serious: No
  Sender: FDA-Public Use
  Company Number: US-PFIZER INC-2014016883

PATIENT
  Age: 81 Year
  Sex: Female

DRUGS (2)
  1. NEOMYCIN SULFATE [Suspect]
     Dosage: UNK
  2. SALSALATE [Suspect]
     Dosage: UNK

REACTIONS (2)
  - Drug hypersensitivity [Unknown]
  - Swelling [Unknown]
